FAERS Safety Report 5963423-5 (Version None)
Quarter: 2008Q4

REPORT INFORMATION
  Report Type: 
  Country: None (occurrence: None)
  Receive Date: 20081124
  Receipt Date: 20081121
  Transmission Date: 20090506
  Serious: Yes (Other)
  Sender: FDA-Public Use
  Company Number: FR-RB-006536-08

PATIENT
  Sex: Male

DRUGS (1)
  1. SUBUTEX [Suspect]

REACTIONS (2)
  - ANXIETY [None]
  - SUICIDAL IDEATION [None]
